FAERS Safety Report 21174501 (Version 1)
Quarter: 2022Q3

REPORT INFORMATION
  Report Type: Spontaneous
  Country: CN (occurrence: CN)
  Receive Date: 20220805
  Receipt Date: 20220805
  Transmission Date: 20221026
  Serious: Yes (Other)
  Sender: FDA-Public Use
  Company Number: CN-STRIDES ARCOLAB LIMITED-2022SP009853

PATIENT
  Age: 5 Decade
  Sex: Female

DRUGS (10)
  1. ETOPOSIDE [Suspect]
     Active Substance: ETOPOSIDE
     Indication: Cervix neoplasm
     Dosage: UNK (THIRD-LINE CHEMOTHERAPY)
     Route: 065
     Dates: start: 2018, end: 2018
  2. ETOPOSIDE [Suspect]
     Active Substance: ETOPOSIDE
     Indication: Neurofibrosarcoma
  3. EPIRUBICIN [Suspect]
     Active Substance: EPIRUBICIN
     Indication: Cervix neoplasm
     Dosage: UNK, CYCLICAL
     Route: 065
     Dates: start: 2015
  4. EPIRUBICIN [Suspect]
     Active Substance: EPIRUBICIN
     Indication: Neurofibrosarcoma
     Dosage: UNK, 8 CYCLES
     Route: 065
  5. CISPLATIN [Suspect]
     Active Substance: CISPLATIN
     Indication: Neurofibrosarcoma
     Dosage: UNK, CYCLICAL
     Route: 065
     Dates: start: 2015
  6. CISPLATIN [Suspect]
     Active Substance: CISPLATIN
     Indication: Cervix neoplasm
     Dosage: UNK (THIRD-LINE CHEMOTHERAPY)
     Route: 065
     Dates: start: 2018, end: 2018
  7. CYCLOPHOSPHAMIDE [Concomitant]
     Active Substance: CYCLOPHOSPHAMIDE
     Indication: Neurofibrosarcoma
     Dosage: UNK, CYCLICAL
     Route: 065
     Dates: start: 2015
  8. CYCLOPHOSPHAMIDE [Concomitant]
     Active Substance: CYCLOPHOSPHAMIDE
     Indication: Cervix neoplasm
  9. IFOSFAMIDE [Concomitant]
     Active Substance: IFOSFAMIDE
     Indication: Neurofibrosarcoma
     Dosage: UNK, 8 CYCLES
     Route: 065
  10. IFOSFAMIDE [Concomitant]
     Active Substance: IFOSFAMIDE
     Indication: Neurofibrosarcoma

REACTIONS (5)
  - Haemorrhage [Unknown]
  - Pleural effusion [Unknown]
  - Chest discomfort [Unknown]
  - Productive cough [Unknown]
  - Off label use [Unknown]

NARRATIVE: CASE EVENT DATE: 20150101
